FAERS Safety Report 9457413 (Version 1)
Quarter: 2013Q3

REPORT INFORMATION
  Report Type: Spontaneous
  Country: US (occurrence: None)
  Receive Date: 20130812
  Receipt Date: 20130812
  Transmission Date: 20140515
  Serious: No
  Sender: FDA-Public Use
  Company Number: None

PATIENT
  Age: 33 Year
  Sex: Female
  Weight: 90.72 kg

DRUGS (1)
  1. TOPIRAMATE [Suspect]
     Dosage: 1-2 PILLS ONCE DAILY TAKEN BY MOUTH
     Route: 048
     Dates: start: 20130624, end: 20130627

REACTIONS (6)
  - Hallucination, visual [None]
  - Mood swings [None]
  - Anger [None]
  - Depression [None]
  - Nausea [None]
  - Headache [None]
